FAERS Safety Report 9369553 (Version 1)
Quarter: 2013Q2

REPORT INFORMATION
  Report Type: Spontaneous
  Country: DE (occurrence: DE)
  Receive Date: 20130626
  Receipt Date: 20130626
  Transmission Date: 20140414
  Serious: Yes (Other)
  Sender: FDA-Public Use
  Company Number: DE-TEVA-412587GER

PATIENT
  Age: 0 Year
  Sex: Female

DRUGS (1)
  1. LAMOTRIGIN [Suspect]
     Dosage: MOTHER USED 400 [MG/D ] / CHILD WAS EXCLUSIVELY BREASTFED THE ENTIRE TIME
     Route: 063

REACTIONS (3)
  - Failure to thrive [Recovered/Resolved]
  - Somnolence [Recovered/Resolved]
  - Exposure during breast feeding [Unknown]
